FAERS Safety Report 6060838-4 (Version None)
Quarter: 2009Q1

REPORT INFORMATION
  Report Type: 
  Country: None (occurrence: None)
  Receive Date: 20090202
  Receipt Date: 20090130
  Transmission Date: 20090719
  Serious: Yes (Death, Other)
  Sender: FDA-Public Use
  Company Number: PHHY2009JP02429

PATIENT
  Age: 3 Year
  Sex: Male

DRUGS (6)
  1. CYCLOSPORINE [Suspect]
     Indication: CORD BLOOD TRANSPLANT THERAPY
  2. CYCLOSPORINE [Suspect]
     Indication: PROPHYLAXIS AGAINST GRAFT VERSUS HOST DISEASE
  3. BUSULFAN [Suspect]
     Indication: BONE MARROW TRANSPLANT
  4. BUSULFAN [Suspect]
     Indication: CORD BLOOD TRANSPLANT THERAPY
  5. FLUDARABINE [Suspect]
     Indication: CORD BLOOD TRANSPLANT THERAPY
  6. PHENYLALANINE [Suspect]
     Indication: CORD BLOOD TRANSPLANT THERAPY

REACTIONS (6)
  - CYSTITIS HAEMORRHAGIC [None]
  - ENGRAFTMENT SYNDROME [None]
  - INTERSTITIAL LUNG DISEASE [None]
  - MECHANICAL VENTILATION [None]
  - RESPIRATORY DISORDER [None]
  - RESPIRATORY FAILURE [None]
